FAERS Safety Report 9325116 (Version 1)
Quarter: 2013Q2

REPORT INFORMATION
  Report Type: Spontaneous
  Country: US (occurrence: None)
  Receive Date: 20130529
  Receipt Date: 20130529
  Transmission Date: 20140414
  Serious: Yes (Other)
  Sender: FDA-Public Use
  Company Number: 2013SA052136

PATIENT
  Age: 23 Year
  Sex: 0

DRUGS (1)
  1. CORTIZONE [Suspect]
     Dates: start: 2013

REACTIONS (1)
  - Skin hypopigmentation [None]
